FAERS Safety Report 8835743 (Version 2)
Quarter: 2012Q4

REPORT INFORMATION
  Report Type: Report from Study
  Country: JP (occurrence: JP)
  Receive Date: 20121011
  Receipt Date: 20121023
  Transmission Date: 20130627
  Serious: Yes (Hospitalization)
  Sender: FDA-Public Use
  Company Number: JP-MERCK-1210JPN004426

PATIENT
  Age: 80 Year
  Sex: Male
  Weight: 59.14 kg

DRUGS (7)
  1. DECADRON [Suspect]
     Indication: MULTIPLE MYELOMA
     Dosage: 20 mg, UNK
     Route: 048
     Dates: start: 20120918, end: 20120928
  2. BORTEZOMIB [Suspect]
     Indication: MULTIPLE MYELOMA
     Dosage: 2.1 mg, UNK
     Route: 042
     Dates: start: 20120918, end: 20120928
  3. STUDY DRUG (UNSPECIFIED) [Suspect]
     Indication: MULTIPLE MYELOMA
     Dosage: 100 mg, UNK
     Route: 042
     Dates: start: 20120918
  4. DIFLUCAN [Concomitant]
     Dosage: UNK
     Dates: start: 20120918, end: 20120927
  5. ZOVIRAX [Concomitant]
     Dosage: UNK
     Dates: start: 20120918, end: 20120927
  6. TAKEPRON [Concomitant]
     Dosage: UNK
     Dates: start: 20120918, end: 20120927
  7. XALATAN [Concomitant]
     Dosage: UNK
     Dates: start: 2010

REACTIONS (1)
  - Ileus [Recovered/Resolved]
